FAERS Safety Report 9163421 (Version 1)
Quarter: 2013Q1

REPORT INFORMATION
  Report Type: Spontaneous
  Country: US (occurrence: None)
  Receive Date: 20130226
  Receipt Date: 20130226
  Transmission Date: 20140127
  Serious: Yes (Hospitalization, Other)
  Sender: FDA-Public Use
  Company Number: 2013P1002405

PATIENT
  Age: 44 Year
  Sex: Female

DRUGS (2)
  1. DEXTROAMPHETAMINE [Suspect]
     Indication: ATTENTION DEFICIT/HYPERACTIVITY DISORDER
  2. ALCOHOL [Suspect]
     Dosage: 3 BEVERAGES

REACTIONS (1)
  - Rhabdomyolysis [None]
